FAERS Safety Report 10104244 (Version 2)
Quarter: 2014Q2

REPORT INFORMATION
  Report Type: Other
  Country: US (occurrence: US)
  Receive Date: 20140424
  Receipt Date: 20140612
  Transmission Date: 20141212
  Serious: Yes (Hospitalization, Other)
  Sender: FDA-Public Use
  Company Number: US-GSKPPD-2014GSK001393

PATIENT
  Age: 41 Year
  Sex: Male

DRUGS (3)
  1. AVANDIA [Suspect]
     Indication: DIABETES MELLITUS
     Route: 048
     Dates: start: 200310
  2. NORVASC [Concomitant]
  3. ALTACE [Concomitant]

REACTIONS (1)
  - Cerebrovascular accident [Recovered/Resolved]
